FAERS Safety Report 5056289-1 (Version None)
Quarter: 2006Q3

REPORT INFORMATION
  Report Type: 
  Country: None (occurrence: None)
  Receive Date: 20060717
  Receipt Date: 20060707
  Transmission Date: 20061208
  Serious: Yes (Hospitalization)
  Sender: FDA-Public Use
  Company Number: 14146

PATIENT
  Age: 70 Year
  Sex: Male

DRUGS (5)
  1. PACLITAXEL [Suspect]
  2. CARBOPLATIN [Suspect]
  3. DMXAA [Suspect]
     Indication: NON-SMALL CELL LUNG CANCER
     Dates: start: 20060302, end: 20060323
  4. ACETAMINOPHEN [Concomitant]
  5. DICLOFENAC SODIUM [Concomitant]

REACTIONS (5)
  - DYSPNOEA [None]
  - INFLUENZA [None]
  - NEUTROPENIC SEPSIS [None]
  - PRODUCTIVE COUGH [None]
  - SPUTUM CULTURE POSITIVE [None]
